FAERS Safety Report 4555594-2 (Version None)
Quarter: 2005Q1

REPORT INFORMATION
  Report Type: 
  Country: None (occurrence: None)
  Receive Date: 20050118
  Receipt Date: 20050111
  Transmission Date: 20050727
  Serious: Yes (Other)
  Sender: FDA-Public Use
  Company Number: 05-01-0055

PATIENT
  Sex: Male

DRUGS (5)
  1. METFORMIN HCL [Suspect]
  2. DILTIAZEM [Concomitant]
  3. LOSARTAN [Concomitant]
  4. ASPIRIN [Concomitant]
  5. SIMVASTATIN [Concomitant]

REACTIONS (1)
  - ATRIAL FIBRILLATION [None]
